FAERS Safety Report 22368758 (Version 2)
Quarter: 2023Q4

REPORT INFORMATION
  Report Type: Spontaneous
  Country: US (occurrence: US)
  Receive Date: 20230525
  Receipt Date: 20231003
  Transmission Date: 20240110
  Serious: No
  Sender: FDA-Public Use
  Company Number: US-BRISTOL-MYERS SQUIBB COMPANY-2023-073921

PATIENT
  Age: 13 Year
  Sex: Male

DRUGS (1)
  1. SPRYCEL [Suspect]
     Active Substance: DASATINIB
     Indication: Chronic myeloid leukaemia
     Route: 048

REACTIONS (5)
  - Alanine aminotransferase increased [Unknown]
  - Pain in extremity [Unknown]
  - Depressed mood [Unknown]
  - Insomnia [Unknown]
  - Decreased appetite [Unknown]
